FAERS Safety Report 16832111 (Version 2)
Quarter: 2019Q3

REPORT INFORMATION
  Report Type: Spontaneous
  Country: US (occurrence: US)
  Receive Date: 20190920
  Receipt Date: 20190920
  Transmission Date: 20191005
  Serious: Yes (Other)
  Sender: FDA-Public Use
  Company Number: US-GILEAD-2019-0429230

PATIENT
  Age: 4 Decade
  Sex: Male

DRUGS (1)
  1. HARVONI [Suspect]
     Active Substance: LEDIPASVIR\SOFOSBUVIR
     Indication: PRODUCT USED FOR UNKNOWN INDICATION
     Dosage: 15 DOSAGE FORM, QD
     Route: 065

REACTIONS (5)
  - Amphetamines positive [Unknown]
  - Hallucination [Unknown]
  - Psychotic disorder [Unknown]
  - Product dose omission [Recovered/Resolved]
  - Overdose [Unknown]
